FAERS Safety Report 10247498 (Version 2)
Quarter: 2014Q2

REPORT INFORMATION
  Report Type: Spontaneous
  Country: BR (occurrence: BR)
  Receive Date: 20140619
  Receipt Date: 20140625
  Transmission Date: 20141212
  Serious: Yes (Other)
  Sender: FDA-Public Use
  Company Number: BR-PFIZER INC-2014164066

PATIENT
  Age: 57 Year
  Sex: Male
  Weight: 65 kg

DRUGS (1)
  1. XALATAN [Suspect]
     Dosage: UNK
     Route: 047
     Dates: start: 201212

REACTIONS (6)
  - Fall [Unknown]
  - Lower limb fracture [Unknown]
  - Activities of daily living impaired [Unknown]
  - Emphysema [Unknown]
  - Vision blurred [Unknown]
  - Eye disorder [Unknown]
